FAERS Safety Report 13029098 (Version 1)
Quarter: 2016Q4

REPORT INFORMATION
  Report Type: Report from Study
  Country: FR (occurrence: FR)
  Receive Date: 20161215
  Receipt Date: 20161215
  Transmission Date: 20170207
  Serious: Yes (Death, Hospitalization, Other)
  Sender: FDA-Public Use
  Company Number: FR-ROCHE-1859615

PATIENT

DRUGS (14)
  1. AZATHIOPRINE. [Suspect]
     Active Substance: AZATHIOPRINE
     Indication: AUTOIMMUNE DISORDER
     Route: 065
  2. ADALIMUMAB [Concomitant]
     Active Substance: ADALIMUMAB
  3. RITUXIMAB [Suspect]
     Active Substance: RITUXIMAB
     Indication: AUTOIMMUNE DISORDER
     Route: 042
  4. CYCLOPHOSPHAMIDE. [Suspect]
     Active Substance: CYCLOPHOSPHAMIDE
     Indication: AUTOIMMUNE DISORDER
     Route: 065
  5. EVEROLIMUS [Suspect]
     Active Substance: EVEROLIMUS
     Indication: AUTOIMMUNE DISORDER
     Route: 065
  6. CICLOSPORINE [Suspect]
     Active Substance: CYCLOSPORINE
     Indication: AUTOIMMUNE DISORDER
     Route: 065
  7. ETANERCEPT [Concomitant]
     Active Substance: ETANERCEPT
  8. METHOTREXATE. [Suspect]
     Active Substance: METHOTREXATE
     Indication: AUTOIMMUNE DISORDER
     Route: 065
  9. CERTOLIZUMAB [Concomitant]
     Active Substance: CERTOLIZUMAB
  10. TOCILIZUMAB [Concomitant]
     Active Substance: TOCILIZUMAB
     Route: 065
  11. RITUXIMAB [Suspect]
     Active Substance: RITUXIMAB
     Route: 042
  12. MYCOPHENOLATE MOFETIL. [Suspect]
     Active Substance: MYCOPHENOLATE MOFETIL
     Indication: AUTOIMMUNE DISORDER
     Route: 065
  13. ABATACEPT [Concomitant]
     Active Substance: ABATACEPT
  14. ANAKINRA [Concomitant]
     Active Substance: ANAKINRA

REACTIONS (18)
  - Pneumocystis jirovecii pneumonia [Unknown]
  - Lung infection [Unknown]
  - Gastrointestinal infection [Unknown]
  - Sinusitis [Unknown]
  - Skin infection [Unknown]
  - Hepatobiliary infection [Unknown]
  - Bronchopulmonary aspergillosis [Unknown]
  - Rhinitis [Unknown]
  - Mucosal infection [Unknown]
  - Bacterial infection [Unknown]
  - Rhinovirus infection [Unknown]
  - Pseudomonas infection [Unknown]
  - Infection [Fatal]
  - Enterobacter infection [Unknown]
  - Enterovirus infection [Unknown]
  - Herpes virus infection [Unknown]
  - Urinary tract infection [Unknown]
  - Soft tissue infection [Unknown]
